FAERS Safety Report 9829818 (Version 1)
Quarter: 2014Q1

REPORT INFORMATION
  Report Type: Report from Study
  Country: US (occurrence: US)
  Receive Date: 20140120
  Receipt Date: 20140120
  Transmission Date: 20141002
  Serious: Yes (Other)
  Sender: FDA-Public Use
  Company Number: US-ROCHE-1332985

PATIENT
  Age: 10 Year
  Sex: Female
  Weight: 39.9 kg

DRUGS (1)
  1. NUTROPIN AQ [Suspect]
     Indication: GROWTH HORMONE DEFICIENCY
     Route: 058
     Dates: start: 20111128

REACTIONS (11)
  - Headache [Unknown]
  - Sleep disorder [Unknown]
  - Sinusitis [Unknown]
  - Presyncope [Unknown]
  - Dyspnoea [Unknown]
  - Failure to thrive [Unknown]
  - Seborrhoea [Unknown]
  - Anxiety [Unknown]
  - Pharyngitis streptococcal [Unknown]
  - Concussion [Unknown]
  - Dizziness [Unknown]
